FAERS Safety Report 20732741 (Version 1)
Quarter: 2022Q2

REPORT INFORMATION
  Report Type: Spontaneous
  Country: US (occurrence: US)
  Receive Date: 20220420
  Receipt Date: 20220420
  Transmission Date: 20220721
  Serious: No
  Sender: FDA-Public Use
  Company Number: US-ALMIRALL, LLC-2021AQU000352

PATIENT

DRUGS (1)
  1. ACZONE [Suspect]
     Active Substance: DAPSONE
     Indication: Acne
     Dosage: 7.5 %, PRN (AS NEEDED DAILY)
     Route: 061

REACTIONS (2)
  - Expired product administered [Unknown]
  - Drug ineffective [Unknown]
